FAERS Safety Report 12538853 (Version 3)
Quarter: 2016Q3

REPORT INFORMATION
  Report Type: Report from Study
  Country: US (occurrence: US)
  Receive Date: 20160708
  Receipt Date: 20160916
  Transmission Date: 20161109
  Serious: No
  Sender: FDA-Public Use
  Company Number: US-AMGEN-USASP2016086004

PATIENT
  Age: 57 Year
  Sex: Female

DRUGS (2)
  1. ENBREL [Suspect]
     Active Substance: ETANERCEPT
     Dosage: UNK
     Route: 065
  2. ENBREL [Suspect]
     Active Substance: ETANERCEPT
     Indication: RHEUMATOID ARTHRITIS
     Dosage: 50 MG, QWK
     Route: 065
     Dates: start: 20160504

REACTIONS (10)
  - Drug dose omission [Unknown]
  - Fatigue [Unknown]
  - Arthritis [Not Recovered/Not Resolved]
  - Abdominal discomfort [Unknown]
  - Blood pressure decreased [Unknown]
  - Fibromyalgia [Unknown]
  - Gait disturbance [Not Recovered/Not Resolved]
  - Dizziness [Unknown]
  - Pain [Unknown]
  - Mobility decreased [Not Recovered/Not Resolved]

NARRATIVE: CASE EVENT DATE: 2016
